FAERS Safety Report 18301741 (Version 1)
Quarter: 2020Q3

REPORT INFORMATION
  Report Type: Other
  Country: DE (occurrence: DE)
  Receive Date: 20200923
  Receipt Date: 20200923
  Transmission Date: 20201103
  Serious: No
  Sender: FDA-Public Use
  Company Number: DE-ROCHE-2671459

PATIENT
  Age: 55 Year
  Sex: Female

DRUGS (7)
  1. BACLOFEN. [Concomitant]
     Active Substance: BACLOFEN
     Dosage: IN THE EVENING
  2. TIZANIDIN [Concomitant]
     Active Substance: TIZANIDINE HYDROCHLORIDE
  3. L?THYROXIN [Concomitant]
     Active Substance: LEVOTHYROXINE SODIUM
  4. BACLOFEN. [Concomitant]
     Active Substance: BACLOFEN
     Dosage: AT NIGHT
  5. OCREVUS [Suspect]
     Active Substance: OCRELIZUMAB
     Indication: SECONDARY PROGRESSIVE MULTIPLE SCLEROSIS
     Dosage: SUBSEQUENT DOSE ON 08/SEP/2020
     Route: 042
     Dates: start: 20200825
  6. EMSELEX [Concomitant]
     Active Substance: DARIFENACIN HYDROBROMIDE
  7. BACLOFEN. [Concomitant]
     Active Substance: BACLOFEN
     Dosage: MORNING AND NOON

REACTIONS (5)
  - Oral fungal infection [Not Recovered/Not Resolved]
  - Paraesthesia [Not Recovered/Not Resolved]
  - Urinary tract infection [Recovered/Resolved]
  - Intentional product use issue [Unknown]
  - Off label use [Unknown]

NARRATIVE: CASE EVENT DATE: 202009
